FAERS Safety Report 21155065 (Version 1)
Quarter: 2022Q3

REPORT INFORMATION
  Report Type: Spontaneous
  Country: US (occurrence: None)
  Receive Date: 20220731
  Receipt Date: 20220731
  Transmission Date: 20221027
  Serious: No
  Sender: FDA-Public Use
  Company Number: None

PATIENT
  Sex: Female

DRUGS (1)
  1. MOLNUPIRAVIR [Suspect]
     Active Substance: MOLNUPIRAVIR
     Indication: COVID-19
     Dosage: OTHER FREQUENCY : 2 X DAY FOR 5 DAYS;?
     Route: 048
     Dates: start: 20220724

REACTIONS (7)
  - Pruritus [None]
  - Skin discolouration [None]
  - Lip swelling [None]
  - Throat irritation [None]
  - Feeling hot [None]
  - Miliaria [None]
  - Rash pruritic [None]
